FAERS Safety Report 5442773-5 (Version None)
Quarter: 2007Q3

REPORT INFORMATION
  Report Type: 
  Country: None (occurrence: None)
  Receive Date: 20070904
  Receipt Date: 20070817
  Transmission Date: 20080115
  Serious: No
  Sender: FDA-Public Use
  Company Number: US-BOEHRINGER INGELHEIM PHARMACEUTICALS, INC.-2007-BP-19475BP

PATIENT
  Age: 67 Year
  Sex: Female

DRUGS (4)
  1. AGGRENOX [Suspect]
     Indication: CEREBROVASCULAR ACCIDENT PROPHYLAXIS
     Route: 048
     Dates: start: 20070727, end: 20070727
  2. EVISTA [Concomitant]
  3. SYNTHROID [Concomitant]
  4. ASPIRIN [Concomitant]

REACTIONS (2)
  - DIZZINESS [None]
  - HEADACHE [None]
